FAERS Safety Report 21620391 (Version 5)
Quarter: 2023Q4

REPORT INFORMATION
  Report Type: Spontaneous
  Country: US (occurrence: None)
  Receive Date: 20221121
  Receipt Date: 20231116
  Transmission Date: 20240110
  Serious: Yes (Hospitalization, Other)
  Sender: FDA-Public Use
  Company Number: US-ROCHE-3219847

PATIENT
  Age: 77 Year
  Sex: Male
  Weight: 99.88 kg

DRUGS (4)
  1. GAVRETO [Suspect]
     Active Substance: PRALSETINIB
     Indication: Non-small cell lung cancer
     Route: 048
     Dates: start: 20210419, end: 20220803
  2. GAVRETO [Suspect]
     Active Substance: PRALSETINIB
     Indication: Thyroid cancer
     Dosage: TAKES IT WITH WATER?ON 03/AUG/2022 LAST DOSE OF PRALSETINIB
     Route: 048
     Dates: start: 20210419, end: 20220803
  3. GAVRETO [Suspect]
     Active Substance: PRALSETINIB
     Dosage: TAKES 4 PILLS
     Route: 048
     Dates: start: 2019
  4. VEMLIDY [Suspect]
     Active Substance: TENOFOVIR ALAFENAMIDE FUMARATE
     Indication: Non-small cell lung cancer
     Route: 065

REACTIONS (10)
  - Decreased immune responsiveness [Unknown]
  - Hepatitis B [Unknown]
  - Pneumonitis [Unknown]
  - Hepatic enzyme increased [Unknown]
  - Pneumonia [Unknown]
  - Metastases to spine [Unknown]
  - Metastasis [Unknown]
  - Intestinal metastasis [Unknown]
  - Spinal compression fracture [Unknown]
  - Bone pain [Unknown]

NARRATIVE: CASE EVENT DATE: 20220803
